FAERS Safety Report 7810775-7 (Version None)
Quarter: 2011Q4

REPORT INFORMATION
  Report Type: 
  Country: None (occurrence: None)
  Receive Date: 20111006
  Receipt Date: 20110922
  Transmission Date: 20120403
  Serious: Yes (Hospitalization, Other)
  Sender: FDA-Public Use
  Company Number: 2011MA004505

PATIENT
  Sex: Female
  Weight: 69.4003 kg

DRUGS (45)
  1. METOCLOPRAMIDE [Suspect]
     Indication: NAUSEA
     Dosage: 10 MG, BID, PO
     Route: 048
     Dates: start: 19990812, end: 20020722
  2. METOCLOPRAMIDE [Suspect]
     Indication: EARLY SATIETY
     Dosage: 10 MG, BID, PO
     Route: 048
     Dates: start: 19990812, end: 20020722
  3. METOCLOPRAMIDE [Suspect]
     Indication: GASTROOESOPHAGEAL REFLUX DISEASE
     Dosage: 10 MG, BID, PO
     Route: 048
     Dates: start: 19990812, end: 20020722
  4. CDP/CLINDIN [Concomitant]
  5. PHENAZOPYRIDINE HCL TAB [Concomitant]
  6. ENALAPRIL MALEATE [Concomitant]
  7. AMPICILLIN SODIUM [Concomitant]
  8. PREVACID [Concomitant]
  9. LISINOPRIL [Concomitant]
  10. TRIAMTERENE [Concomitant]
  11. DECADRON [Concomitant]
  12. ARTANE [Concomitant]
  13. LEVAQUIN [Concomitant]
  14. METRONIDAZOLE [Concomitant]
  15. PRILOSEC [Concomitant]
  16. AMITRIPTYLINE HCL [Concomitant]
  17. CHEMOTHERAPY [Concomitant]
  18. LORAZEPAM [Concomitant]
  19. METOPROLOL TARTRATE [Concomitant]
  20. CALCIUM CARBONATE [Concomitant]
  21. EFFEXOR [Concomitant]
  22. CLONIDINE [Concomitant]
  23. PAXIL [Concomitant]
  24. HYOSCYAMINE [Concomitant]
  25. QUESTRAN [Concomitant]
  26. ENABLEX [Concomitant]
  27. LEVAQUIN [Concomitant]
  28. LEVSIN [Concomitant]
  29. ATENOLOL [Concomitant]
  30. ZELNORM [Concomitant]
  31. RECLAST [Concomitant]
  32. TRAZODONE HYDROCHLORIDE [Concomitant]
  33. POTASSIUM [Concomitant]
  34. KEFLEX [Concomitant]
  35. CLONIDINE [Concomitant]
  36. BETHANECHOL [Concomitant]
  37. CIPROFLOXACIN [Concomitant]
  38. HYDROCODONE BITARTRATE AND ACETAMINOPHEN [Concomitant]
  39. TRIMETHOPRIM + SULFAMETHOXAZOLE [Concomitant]
  40. MIACALCIN SPRAY [Concomitant]
  41. MACRODANTIN [Concomitant]
  42. LOMOTIL [Concomitant]
  43. LEXAPRO [Concomitant]
  44. RESERPINE [Concomitant]
  45. BUPROPION HCL [Concomitant]

REACTIONS (56)
  - DYSPHAGIA [None]
  - DIVERTICULITIS [None]
  - RHINITIS ALLERGIC [None]
  - INTERVERTEBRAL DISC DEGENERATION [None]
  - UTERINE CERVIX STENOSIS [None]
  - FOOT DEFORMITY [None]
  - GASTRITIS [None]
  - EXTRAPYRAMIDAL DISORDER [None]
  - GASTRITIS ATROPHIC [None]
  - HAEMORRHOIDS [None]
  - ABDOMINAL PAIN UPPER [None]
  - CHEST PAIN [None]
  - DECREASED APPETITE [None]
  - SEROMA [None]
  - HAEMATOCHEZIA [None]
  - NEUROPATHY PERIPHERAL [None]
  - ENDOMETRIAL HYPERTROPHY [None]
  - HIATUS HERNIA [None]
  - CONSTIPATION [None]
  - LEFT ATRIAL DILATATION [None]
  - SCOLIOSIS [None]
  - ECONOMIC PROBLEM [None]
  - EMOTIONAL DISORDER [None]
  - HYPERTENSION [None]
  - GASTROOESOPHAGEAL REFLUX DISEASE [None]
  - NAUSEA [None]
  - PELVIC PAIN [None]
  - ATROPHIC VULVOVAGINITIS [None]
  - BLOOD CHOLESTEROL INCREASED [None]
  - BLOOD PRESSURE INCREASED [None]
  - POLLAKIURIA [None]
  - URINARY TRACT INFECTION [None]
  - NERVE ROOT COMPRESSION [None]
  - UTERINE ENLARGEMENT [None]
  - ABDOMINAL PAIN [None]
  - COMPUTERISED TOMOGRAM ABDOMEN ABNORMAL [None]
  - COMPRESSION FRACTURE [None]
  - ANXIETY [None]
  - IRRITABLE BOWEL SYNDROME [None]
  - SINUSITIS [None]
  - ELECTROCARDIOGRAM ABNORMAL [None]
  - IMPAIRED DRIVING ABILITY [None]
  - FATIGUE [None]
  - DEPRESSION [None]
  - ARTHROPOD BITE [None]
  - DIARRHOEA [None]
  - ABDOMINAL ADHESIONS [None]
  - HIGH DENSITY LIPOPROTEIN DECREASED [None]
  - TARDIVE DYSKINESIA [None]
  - UTERINE LEIOMYOMA [None]
  - GAIT DISTURBANCE [None]
  - MUSCLE SPASMS [None]
  - WEIGHT DECREASED [None]
  - BLOOD PRESSURE DECREASED [None]
  - DYSPAREUNIA [None]
  - PAIN IN EXTREMITY [None]
